FAERS Safety Report 8970877 (Version 1)
Quarter: 2012Q4

REPORT INFORMATION
  Report Type: 
  Country: SE (occurrence: SE)
  Receive Date: 20121218
  Receipt Date: 20121218
  Transmission Date: 20130627
  Serious: Yes (Hospitalization)
  Sender: FDA-Public Use
  Company Number: SE-NOVOPROD-366753

PATIENT
  Age: 39 Year
  Sex: Female

DRUGS (5)
  1. VICTOZA [Suspect]
     Indication: TYPE 2 DIABETES MELLITUS
     Route: 065
  2. VICTOZA [Suspect]
     Dosage: 1.2 mg, qd
     Route: 065
  3. MINDIAB [Concomitant]
     Dosage: 2.5 mg, UNK
  4. ENALAPRIL RATIOPHARM [Concomitant]
  5. IMOVANE [Concomitant]

REACTIONS (3)
  - Chest discomfort [Unknown]
  - Malaise [Unknown]
  - Vomiting [Unknown]
